FAERS Safety Report 10093692 (Version 1)
Quarter: 2014Q2

REPORT INFORMATION
  Report Type: Spontaneous
  Country: US (occurrence: US)
  Receive Date: 20140421
  Receipt Date: 20140421
  Transmission Date: 20141212
  Serious: No
  Sender: FDA-Public Use
  Company Number: US-SA-2013SA130348

PATIENT
  Age: 66 Year
  Sex: Female

DRUGS (3)
  1. ALLEGRA [Suspect]
     Indication: URTICARIA CHRONIC
     Dosage: TAKEN FROM:A FEW WEEKS AGO
     Route: 048
  2. HYDROXYZINE [Suspect]
     Route: 065
  3. THYROID THERAPY [Concomitant]
     Route: 065

REACTIONS (2)
  - Dry mouth [Recovering/Resolving]
  - Extra dose administered [Unknown]
